FAERS Safety Report 25724353 (Version 2)
Quarter: 2025Q3

REPORT INFORMATION
  Report Type: Spontaneous
  Country: JP (occurrence: JP)
  Receive Date: 20250826
  Receipt Date: 20250829
  Transmission Date: 20251020
  Serious: Yes (Hospitalization, Other)
  Sender: STRIDES
  Company Number: JP-MLMSERVICE-20250813-PI604245-00105-6

PATIENT
  Age: 50 Year
  Sex: Female
  Weight: 91.4 kg

DRUGS (10)
  1. HYDROCORTISONE [Suspect]
     Active Substance: HYDROCORTISONE
     Indication: Steroid withdrawal syndrome
     Route: 048
  2. HYDROCORTISONE [Suspect]
     Active Substance: HYDROCORTISONE
     Route: 048
  3. HYDROCORTISONE [Suspect]
     Active Substance: HYDROCORTISONE
     Route: 048
  4. CLOBETASOL [Suspect]
     Active Substance: CLOBETASOL
     Indication: Benign familial pemphigus
     Route: 061
  5. BETAMETHASONE [Suspect]
     Active Substance: BETAMETHASONE
     Indication: Benign familial pemphigus
     Route: 061
  6. BETAMETHASONE [Suspect]
     Active Substance: BETAMETHASONE
     Route: 061
  7. BETAMETHASONE [Suspect]
     Active Substance: BETAMETHASONE
     Route: 061
  8. BETAMETHASONE [Suspect]
     Active Substance: BETAMETHASONE
     Route: 061
  9. BETAMETHASONE DIPROPIONATE\CALCIPOTRIENE MONOHYDRATE [Suspect]
     Active Substance: BETAMETHASONE DIPROPIONATE\CALCIPOTRIENE MONOHYDRATE
     Indication: Benign familial pemphigus
     Route: 061
  10. APREMILAST [Concomitant]
     Active Substance: APREMILAST
     Indication: Product used for unknown indication
     Route: 065

REACTIONS (10)
  - Glucose tolerance impaired [Unknown]
  - Compression fracture [Unknown]
  - Osteoporosis [Unknown]
  - Pseudo Cushing^s syndrome [Unknown]
  - Condition aggravated [Unknown]
  - Oral candidiasis [Unknown]
  - Insomnia [Recovering/Resolving]
  - Conjunctival hyperaemia [Unknown]
  - Nephrolithiasis [Unknown]
  - Off label use [Unknown]
